FAERS Safety Report 17947514 (Version 1)
Quarter: 2020Q2

REPORT INFORMATION
  Report Type: Spontaneous
  Country: US (occurrence: US)
  Receive Date: 20200625
  Receipt Date: 20200625
  Transmission Date: 20200714
  Serious: No
  Sender: FDA-Public Use
  Company Number: None

PATIENT
  Age: 83 Year
  Sex: Male

DRUGS (1)
  1. ZEPATIER [Suspect]
     Active Substance: ELBASVIR\GRAZOPREVIR
     Indication: HEPATITIS C
     Dosage: ?          OTHER DOSE:50-100 MG TABLET;?
     Route: 048
     Dates: start: 20200528

REACTIONS (2)
  - Product dose omission [None]
  - Product administration error [None]

NARRATIVE: CASE EVENT DATE: 20200620
